FAERS Safety Report 9120497 (Version 4)
Quarter: 2014Q2

REPORT INFORMATION
  Report Type: Spontaneous
  Country: US (occurrence: US)
  Receive Date: 20130226
  Receipt Date: 20140403
  Transmission Date: 20141212
  Serious: Yes (Other)
  Sender: FDA-Public Use
  Company Number: US-PFIZER INC-2013065954

PATIENT
  Age: 56 Year
  Sex: Male
  Weight: 185.94 kg

DRUGS (5)
  1. EFFEXOR XR [Suspect]
     Indication: ANTIDEPRESSANT THERAPY
     Dosage: 150 MG, 2X/DAY
     Route: 048
     Dates: end: 201302
  2. LIPITOR [Concomitant]
     Dosage: 20 MG, UNK
  3. GLUCOTROL [Concomitant]
     Dosage: 10 MG, 2X/DAY
  4. ACCUPRIL [Concomitant]
     Dosage: 20 MG, 1X/DAY
  5. DETROL LA [Concomitant]
     Dosage: 4 MG, 1X/DAY

REACTIONS (6)
  - Mental disorder [Unknown]
  - Anger [Unknown]
  - Restlessness [Unknown]
  - Drug withdrawal syndrome [Unknown]
  - Emotional disorder [Unknown]
  - Malaise [Unknown]
